FAERS Safety Report 18218690 (Version 1)
Quarter: 2020Q3

REPORT INFORMATION
  Report Type: Spontaneous
  Country: US (occurrence: US)
  Receive Date: 20200828
  Receipt Date: 20200828
  Transmission Date: 20201103
  Serious: No
  Sender: FDA-Public Use
  Company Number: None

PATIENT
  Age: 42 Year
  Sex: Male

DRUGS (1)
  1. TENOFOVIR TAB 300MG [Suspect]
     Active Substance: TENOFOVIR
     Route: 048
     Dates: start: 201505, end: 202005

REACTIONS (1)
  - CD4 lymphocytes decreased [None]

NARRATIVE: CASE EVENT DATE: 20200501
